FAERS Safety Report 24933975 (Version 1)
Quarter: 2025Q1

REPORT INFORMATION
  Report Type: Report from Study
  Country: CA (occurrence: CA)
  Receive Date: 20250206
  Receipt Date: 20250206
  Transmission Date: 20250408
  Serious: Yes (Other)
  Sender: EXELIXIS
  Company Number: CA-IPSEN Group, Research and Development-2024-07308

PATIENT
  Sex: Male

DRUGS (19)
  1. CABOMETYX [Suspect]
     Active Substance: CABOZANTINIB S-MALATE
     Indication: Renal cell carcinoma
     Dosage: 20 MG, QD
     Route: 048
     Dates: start: 20230821
  2. PROCHLORAZINE [Concomitant]
  3. LOPERAMIDE [Concomitant]
     Active Substance: LOPERAMIDE
  4. UREMOL [Concomitant]
     Active Substance: UREA
  5. SYNTHROID [Concomitant]
     Active Substance: LEVOTHYROXINE SODIUM
  6. AMLODIPINE [Concomitant]
     Active Substance: AMLODIPINE BESYLATE
  7. CLOPIDOGREL [Concomitant]
     Active Substance: CLOPIDOGREL BISULFATE
  8. ATORVASTATIN [Concomitant]
     Active Substance: ATORVASTATIN
  9. BISOPROLOL [Concomitant]
     Active Substance: BISOPROLOL
  10. HYDROMORPHONE [Concomitant]
     Active Substance: HYDROMORPHONE
  11. ACETAMINOPHEN [Concomitant]
     Active Substance: ACETAMINOPHEN
  12. ACETAMINOPHEN [Concomitant]
     Active Substance: ACETAMINOPHEN
  13. PANTOPRAZOLE SODIUM [Concomitant]
     Active Substance: PANTOPRAZOLE SODIUM
  14. ALBUTEROL [Concomitant]
     Active Substance: ALBUTEROL
  15. ALBUTEROL [Concomitant]
     Active Substance: ALBUTEROL
  16. RANITIDINE [Concomitant]
     Active Substance: RANITIDINE
  17. CERUMOL GTE OT [Concomitant]
  18. HYDRATING CREAM GLAXAL BASE [Concomitant]
  19. MAGNESIUM GLUCONATE [Concomitant]
     Active Substance: MAGNESIUM GLUCONATE
     Dosage: 500 MG, BID [BID X 4 DAYS]

REACTIONS (1)
  - Malignant neoplasm progression [Unknown]
